FAERS Safety Report 11009304 (Version 2)
Quarter: 2015Q2

REPORT INFORMATION
  Report Type: Spontaneous
  Country: BR (occurrence: BR)
  Receive Date: 20150410
  Receipt Date: 20150507
  Transmission Date: 20150821
  Serious: Yes (Other)
  Sender: FDA-Public Use
  Company Number: BR-PFIZER INC-2015117162

PATIENT
  Age: 38 Year
  Sex: Female

DRUGS (3)
  1. DIANE [Concomitant]
     Active Substance: CYPROTERONE ACETATE\ETHINYL ESTRADIOL
     Indication: CONTRACEPTION
     Dosage: UNK, 1X/DAY
  2. CELEBRA [Suspect]
     Active Substance: CELECOXIB
     Indication: ARTHRITIS
     Dosage: 100 MG, 1X/DAY
     Dates: start: 2014
  3. CITONEURIN [Concomitant]
     Active Substance: CYANOCOBALAMIN\PYRIDOXINE HYDROCHLORIDE\THIAMINE
     Dosage: UNK

REACTIONS (3)
  - Drug ineffective [Unknown]
  - Disease recurrence [Unknown]
  - Helicobacter gastritis [Unknown]

NARRATIVE: CASE EVENT DATE: 2014
